FAERS Safety Report 7821048-0 (Version None)
Quarter: 2011Q4

REPORT INFORMATION
  Report Type: 
  Country: None (occurrence: None)
  Receive Date: 20111018
  Receipt Date: 20111014
  Transmission Date: 20120403
  Serious: No
  Sender: FDA-Public Use
  Company Number: US-PFIZER INC-2011204687

PATIENT
  Sex: Female
  Weight: 113 kg

DRUGS (1)
  1. DILANTIN [Suspect]
     Indication: CONVULSION
     Dosage: UNK
     Route: 048
     Dates: start: 19900101

REACTIONS (3)
  - NAUSEA [None]
  - DYSGEUSIA [None]
  - MALAISE [None]
